FAERS Safety Report 11092290 (Version 4)
Quarter: 2015Q4

REPORT INFORMATION
  Report Type: Spontaneous
  Country: US (occurrence: US)
  Receive Date: 20150506
  Receipt Date: 20151023
  Transmission Date: 20160304
  Serious: Yes (Hospitalization, Other)
  Sender: FDA-Public Use
  Company Number: US-JNJFOC-20150424219

PATIENT
  Sex: Female
  Weight: 81.65 kg

DRUGS (3)
  1. IBUPROFEN. [Concomitant]
     Active Substance: IBUPROFEN
     Indication: PAIN
     Route: 065
  2. ETHANOL [Suspect]
     Active Substance: ALCOHOL
     Indication: PRODUCT USED FOR UNKNOWN INDICATION
     Dosage: FOUR SHOTS AND HALF A BEER.
     Route: 065
  3. TYLENOL EXTRA STRENGTH [Suspect]
     Active Substance: ACETAMINOPHEN
     Indication: TOOTHACHE
     Dosage: 5000 MG PER DAY (2-3 PILLS EVERY 4 HOURS)
     Route: 048
     Dates: start: 20130427, end: 20130428

REACTIONS (18)
  - Coagulopathy [None]
  - Dyspnoea [None]
  - Blood thyroid stimulating hormone decreased [None]
  - Nausea [None]
  - Diarrhoea [None]
  - Dizziness [None]
  - Drug screen positive [None]
  - Atelectasis [None]
  - Blood pressure increased [None]
  - Blood electrolytes abnormal [None]
  - Tachycardia [None]
  - Accidental overdose [Recovering/Resolving]
  - Anaemia [None]
  - Pleural effusion [None]
  - Cholecystitis [None]
  - Atypical pneumonia [None]
  - Hepatotoxicity [Recovering/Resolving]
  - Toxicity to various agents [Recovering/Resolving]

NARRATIVE: CASE EVENT DATE: 2013
